FAERS Safety Report 6291481-X (Version None)
Quarter: 2009Q3

REPORT INFORMATION
  Report Type: 
  Country: None (occurrence: None)
  Receive Date: 20090730
  Receipt Date: 20090701
  Transmission Date: 20100115
  Serious: No
  Sender: FDA-Public Use
  Company Number: US-BAYER-200912194BCC

PATIENT
  Age: 66 Year
  Sex: Female
  Weight: 74 kg

DRUGS (5)
  1. ALEVE [Suspect]
     Indication: INFLAMMATION
     Dosage: TOTAL DAILY DOSE: 220 MG  UNIT DOSE: 220 MG
     Route: 048
     Dates: start: 20090626
  2. CRESTOR [Concomitant]
     Route: 065
  3. AVALIDE [Concomitant]
     Route: 065
  4. ENTERIC ASPIRIN [Concomitant]
     Route: 065
     Dates: end: 20090601
  5. ASPIRIN [Concomitant]
     Route: 065
     Dates: end: 20090601

REACTIONS (1)
  - BLOOD PRESSURE INCREASED [None]
